FAERS Safety Report 8511708-0 (Version None)
Quarter: 2012Q3

REPORT INFORMATION
  Report Type: 
  Country: None (occurrence: None)
  Receive Date: 20120710
  Receipt Date: 20120710
  Transmission Date: 20120928
  Serious: Yes (Death, Life-Threatening, Hospitalization, Disabling, Congenital Anomaly, Other)
  Sender: FDA-Public Use
  Company Number: None

PATIENT
  Age: 21 Year
  Sex: Male
  Weight: 79.3795 kg

DRUGS (1)
  1. METHADONE HCL [Suspect]
     Indication: SELF-MEDICATION
     Dosage: UNKNOWN APROX. 1 WEEK - UNKNOWN

REACTIONS (1)
  - SELF-MEDICATION [None]
